FAERS Safety Report 10833499 (Version 1)
Quarter: 2015Q1

REPORT INFORMATION
  Report Type: Spontaneous
  Country: IL (occurrence: IL)
  Receive Date: 20150219
  Receipt Date: 20150219
  Transmission Date: 20150721
  Serious: Yes (Other)
  Sender: FDA-Public Use
  Company Number: IL-ASTRAZENECA-2015SE14265

PATIENT
  Age: 77 Year
  Sex: Male

DRUGS (1)
  1. BRILINTA [Suspect]
     Active Substance: TICAGRELOR
     Indication: ANGINA UNSTABLE
     Route: 048

REACTIONS (4)
  - Hyperhidrosis [Unknown]
  - Chest pain [Unknown]
  - Dyspnoea [Unknown]
  - Acute myocardial infarction [Unknown]
